FAERS Safety Report 5831208-6 (Version None)
Quarter: 2008Q3

REPORT INFORMATION
  Report Type: 
  Country: None (occurrence: None)
  Receive Date: 20080801
  Receipt Date: 20080528
  Transmission Date: 20090109
  Serious: No
  Sender: FDA-Public Use
  Company Number: US-BRISTOL-MYERS SQUIBB COMPANY-14207880

PATIENT
  Age: 61 Year
  Sex: Female
  Weight: 150 kg

DRUGS (4)
  1. COUMADIN [Suspect]
     Indication: THROMBOSIS
     Dosage: STARTED APPROXIMATELY 5 YEARS AGO.STOPPED-MAR 2008. ADVISED ON 27-MAY-2008 TO START AGAIN.
  2. COUMADIN [Suspect]
     Indication: MITRAL VALVE DISEASE
     Dosage: STARTED APPROXIMATELY 5 YEARS AGO.STOPPED-MAR 2008. ADVISED ON 27-MAY-2008 TO START AGAIN.
  3. BENADRYL [Concomitant]
  4. CARTIA XT [Concomitant]

REACTIONS (1)
  - URTICARIA [None]
